FAERS Safety Report 6087793-5 (Version None)
Quarter: 2009Q1

REPORT INFORMATION
  Report Type: 
  Country: None (occurrence: None)
  Receive Date: 20090219
  Receipt Date: 20090105
  Transmission Date: 20090719
  Serious: No
  Sender: FDA-Public Use
  Company Number: WAES 0901USA00131

PATIENT
  Age: 83 Year
  Sex: Male

DRUGS (3)
  1. JANUVIA [Suspect]
     Indication: DIABETES MELLITUS
     Dosage: 50 MG/DAILY/PO
     Route: 048
     Dates: start: 20081001, end: 20081227
  2. GASTROINTESTINAL PREPARATIONS [Concomitant]
  3. GLYBURIDE [Concomitant]

REACTIONS (1)
  - DIARRHOEA [None]
